FAERS Safety Report 23082940 (Version 1)
Quarter: 2023Q4

REPORT INFORMATION
  Report Type: Report from Study
  Country: DE (occurrence: DE)
  Receive Date: 20231019
  Receipt Date: 20231019
  Transmission Date: 20240110
  Serious: Yes (Hospitalization)
  Sender: FDA-Public Use
  Company Number: DE-002147023-NVSC2023DE223927

PATIENT
  Sex: Male
  Weight: 97 kg

DRUGS (2)
  1. COSENTYX [Suspect]
     Active Substance: SECUKINUMAB
     Indication: Psoriatic arthropathy
     Dosage: 300 MG
     Route: 058
     Dates: start: 20200406, end: 20230611
  2. METHOTREXATE SODIUM [Suspect]
     Active Substance: METHOTREXATE SODIUM
     Indication: Psoriatic arthropathy
     Dosage: 17.5 UNK PEN
     Route: 058
     Dates: start: 202203, end: 20230702

REACTIONS (2)
  - Sepsis [Recovered/Resolved]
  - Bullous erysipelas [Recovered/Resolved]

NARRATIVE: CASE EVENT DATE: 20230702
